FAERS Safety Report 15202696 (Version 1)
Quarter: 2018Q3

REPORT INFORMATION
  Report Type: Spontaneous
  Country: US (occurrence: US)
  Receive Date: 20180726
  Receipt Date: 20180726
  Transmission Date: 20181010
  Serious: Yes (Other)
  Sender: FDA-Public Use
  Company Number: US-MYLANLABS-2018M1054682

PATIENT
  Age: 36 Year
  Sex: Male

DRUGS (20)
  1. PREDNISONE. [Suspect]
     Active Substance: PREDNISONE
     Indication: TUBERCULOSIS
  2. RIFAMPIN. [Concomitant]
     Active Substance: RIFAMPIN
     Indication: TUBERCULOSIS
  3. ISONIAZID. [Concomitant]
     Active Substance: ISONIAZID
     Indication: BONE TUBERCULOSIS
     Dosage: 300 MG, QD
     Route: 065
  4. PYRAZINAMIDE. [Concomitant]
     Active Substance: PYRAZINAMIDE
     Indication: BONE TUBERCULOSIS
     Route: 065
  5. PYRAZINAMIDE. [Concomitant]
     Active Substance: PYRAZINAMIDE
     Indication: MENINGITIS BACTERIAL
  6. PREDNISONE. [Suspect]
     Active Substance: PREDNISONE
     Indication: BONE TUBERCULOSIS
     Route: 065
  7. DEXAMETHASONE. [Suspect]
     Active Substance: DEXAMETHASONE
     Indication: MENINGITIS BACTERIAL
  8. MOXIFLOXACIN. [Concomitant]
     Active Substance: MOXIFLOXACIN
     Indication: MENINGITIS BACTERIAL
  9. RIFAMPIN. [Concomitant]
     Active Substance: RIFAMPIN
     Indication: BONE TUBERCULOSIS
     Route: 065
  10. ISONIAZID. [Concomitant]
     Active Substance: ISONIAZID
     Indication: MENINGITIS BACTERIAL
  11. PYRAZINAMIDE. [Concomitant]
     Active Substance: PYRAZINAMIDE
     Indication: TUBERCULOSIS
  12. DEXAMETHASONE. [Suspect]
     Active Substance: DEXAMETHASONE
     Indication: BONE TUBERCULOSIS
     Dosage: WITH PLANNED TAPER
     Route: 065
  13. ETHAMBUTOL [Concomitant]
     Active Substance: ETHAMBUTOL HYDROCHLORIDE
     Indication: TUBERCULOSIS
  14. MOXIFLOXACIN. [Concomitant]
     Active Substance: MOXIFLOXACIN
     Indication: BONE TUBERCULOSIS
     Route: 065
  15. DEXAMETHASONE. [Suspect]
     Active Substance: DEXAMETHASONE
     Indication: TUBERCULOSIS
  16. RIFAMPIN. [Concomitant]
     Active Substance: RIFAMPIN
     Indication: MENINGITIS BACTERIAL
  17. ISONIAZID. [Concomitant]
     Active Substance: ISONIAZID
     Indication: TUBERCULOSIS
  18. ETHAMBUTOL [Concomitant]
     Active Substance: ETHAMBUTOL HYDROCHLORIDE
     Indication: BONE TUBERCULOSIS
     Dosage: 1200 MG, QD
     Route: 065
  19. ETHAMBUTOL [Concomitant]
     Active Substance: ETHAMBUTOL HYDROCHLORIDE
     Indication: MENINGITIS BACTERIAL
  20. MOXIFLOXACIN. [Concomitant]
     Active Substance: MOXIFLOXACIN
     Indication: TUBERCULOSIS

REACTIONS (2)
  - Affective disorder [Recovering/Resolving]
  - Suicidal ideation [Recovering/Resolving]
